FAERS Safety Report 5697708-7 (Version None)
Quarter: 2008Q2

REPORT INFORMATION
  Report Type: 
  Country: None (occurrence: None)
  Receive Date: 20080408
  Receipt Date: 20080404
  Transmission Date: 20081010
  Serious: Yes (Hospitalization)
  Sender: FDA-Public Use
  Company Number: B0501812A

PATIENT
  Age: 59 Year
  Sex: Female

DRUGS (4)
  1. LAPATINIB [Suspect]
     Dosage: 1250MG PER DAY
     Route: 048
     Dates: start: 20070801
  2. CAPECITABINE [Suspect]
     Dosage: 2000MG PER DAY
     Route: 048
     Dates: start: 20070801
  3. VOLTAREN [Concomitant]
     Indication: BONE PAIN
     Route: 048
  4. ECURAL [Concomitant]
     Dates: start: 20071204

REACTIONS (4)
  - ERYSIPELAS [None]
  - EXTREMITY NECROSIS [None]
  - PYREXIA [None]
  - RASH [None]
